FAERS Safety Report 8946840 (Version 2)
Quarter: 2013Q3

REPORT INFORMATION
  Report Type: Spontaneous
  Country: US (occurrence: US)
  Receive Date: 20121205
  Receipt Date: 20130813
  Transmission Date: 20140515
  Serious: Yes (Other)
  Sender: FDA-Public Use
  Company Number: CHPA2012US024308

PATIENT
  Age: 83 Year
  Sex: Male

DRUGS (4)
  1. MAALOX ADV MAXIMUM STRENGTH ANTACID/ANTIGAS CHEWABLE [Suspect]
     Indication: HIATUS HERNIA
     Dosage: UNK, PRN
     Route: 048
     Dates: start: 2002
  2. MAALOX ADV MAXIMUM STRENGTH ANTACID/ANTIGAS CHEWABLE [Suspect]
     Indication: ABDOMINAL DISCOMFORT
  3. MAALOX ADV MAXIMUM STRENGTH ANTACID/ANTIGAS CHEWABLE [Suspect]
     Indication: FLATULENCE
  4. MAALOX ADV MAXIMUM STRENGTH ANTACID/ANTIGAS CHEWABLE [Suspect]
     Indication: DYSPEPSIA

REACTIONS (2)
  - Hiatus hernia [Not Recovered/Not Resolved]
  - Off label use [Unknown]
